FAERS Safety Report 9424156 (Version 1)
Quarter: 2013Q3

REPORT INFORMATION
  Report Type: Spontaneous
  Country: IN (occurrence: IN)
  Receive Date: 20130729
  Receipt Date: 20130729
  Transmission Date: 20140515
  Serious: Yes (Other)
  Sender: FDA-Public Use
  Company Number: PHHY2013IN079965

PATIENT
  Sex: 0

DRUGS (2)
  1. LETROZOLE [Suspect]
     Indication: INFERTILITY
     Dosage: (MATERNAL DOSE 5 MG FOR 5 DAYS FROM DAY 3 TO 7 OF THE CYCLE)
     Route: 064
  2. LETROZOLE [Suspect]
     Indication: OFF LABEL USE

REACTIONS (1)
  - Albinism [Unknown]
